FAERS Safety Report 14480886 (Version 6)
Quarter: 2021Q2

REPORT INFORMATION
  Report Type: Spontaneous
  Country: DE (occurrence: DE)
  Receive Date: 20180202
  Receipt Date: 20210401
  Transmission Date: 20210716
  Serious: Yes (Death, Other)
  Sender: FDA-Public Use
  Company Number: DE-BAUSCH-BL-2018-002907

PATIENT
  Age: 77 Year
  Sex: Female

DRUGS (13)
  1. TOREM [Concomitant]
     Active Substance: TORSEMIDE
     Indication: PRODUCT USED FOR UNKNOWN INDICATION
  2. TILIDINE [Concomitant]
     Active Substance: TILIDINE
     Indication: PRODUCT USED FOR UNKNOWN INDICATION
  3. DEKRISTOL [Concomitant]
     Active Substance: CHOLECALCIFEROL
     Indication: PRODUCT USED FOR UNKNOWN INDICATION
  4. L?THYROXINE [Concomitant]
     Active Substance: LEVOTHYROXINE
     Indication: PRODUCT USED FOR UNKNOWN INDICATION
  5. TAVANIC [Concomitant]
     Active Substance: LEVOFLOXACIN
     Indication: PRODUCT USED FOR UNKNOWN INDICATION
  6. PREDNICARBATE. [Suspect]
     Active Substance: PREDNICARBATE
     Indication: STEVENS-JOHNSON SYNDROME
     Route: 061
     Dates: start: 2017
  7. CLOBETASOL [Suspect]
     Active Substance: CLOBETASOL
     Indication: STEVENS-JOHNSON SYNDROME
     Route: 061
     Dates: start: 201705
  8. ADVANTAN [Suspect]
     Active Substance: METHYLPREDNISOLONE ACEPONATE
     Indication: STEVENS-JOHNSON SYNDROME
     Dosage: STARTING WITH 60 MG OVER TEN DAYS IN TOTAL
     Route: 065
     Dates: start: 201705
  9. SULTAMICILLIN [Suspect]
     Active Substance: SULTAMICILLIN
     Indication: PNEUMONIA
     Route: 065
  10. AMLODIPINE [Concomitant]
     Active Substance: AMLODIPINE BESYLATE
     Indication: PRODUCT USED FOR UNKNOWN INDICATION
  11. BISOPROLOL [Concomitant]
     Active Substance: BISOPROLOL
     Indication: PRODUCT USED FOR UNKNOWN INDICATION
  12. PANTOZOLE [Concomitant]
     Active Substance: PANTOPRAZOLE SODIUM
     Indication: PRODUCT USED FOR UNKNOWN INDICATION
  13. ADVANTAN [Suspect]
     Active Substance: METHYLPREDNISOLONE ACEPONATE
     Dosage: DECREASING DOSAGES
     Route: 065
     Dates: start: 2017

REACTIONS (3)
  - Bacteraemia [Recovering/Resolving]
  - Ecthyma [Recovering/Resolving]
  - Escherichia infection [Recovering/Resolving]
